FAERS Safety Report 5672535-5 (Version None)
Quarter: 2008Q1

REPORT INFORMATION
  Report Type: 
  Country: None (occurrence: None)
  Receive Date: 20080317
  Receipt Date: 20080306
  Transmission Date: 20080703
  Serious: Yes (Death, Hospitalization)
  Sender: FDA-Public Use
  Company Number: RENA-12321

PATIENT
  Age: 67 Year
  Sex: Male

DRUGS (2)
  1. RENAGEL [Suspect]
     Indication: HYPERPHOSPHATAEMIA
  2. METOCLOPRAMIDE [Suspect]
     Indication: DRUG USE FOR UNKNOWN INDICATION
     Dates: start: 20070301

REACTIONS (4)
  - DRUG CLEARANCE DECREASED [None]
  - DRUG TOXICITY [None]
  - PARKINSONISM [None]
  - URINARY TRACT INFECTION [None]
